FAERS Safety Report 14929631 (Version 1)
Quarter: 2018Q2

REPORT INFORMATION
  Report Type: Report from Study
  Country: US (occurrence: US)
  Receive Date: 20180523
  Receipt Date: 20180523
  Transmission Date: 20180711
  Serious: Yes (Death, Hospitalization, Other)
  Sender: FDA-Public Use
  Company Number: US-PFIZER INC-2018048558

PATIENT
  Age: 69 Year
  Sex: Male

DRUGS (3)
  1. SUTENT [Suspect]
     Active Substance: SUNITINIB MALATE
     Dosage: 50 MG, CYCLIC (DAILY; 2 WEEK ON AND 1 WEEK OFF)
     Route: 048
     Dates: start: 20180319, end: 201804
  2. ZOFRAN [Concomitant]
     Active Substance: ONDANSETRON HYDROCHLORIDE
     Dosage: UNK
  3. SUTENT [Suspect]
     Active Substance: SUNITINIB MALATE
     Indication: RENAL CELL CARCINOMA
     Dosage: 50 MG, CYCLIC (DAILY,2 WEEK ON AND 1 WEEK OFF)
     Route: 048
     Dates: start: 20180122, end: 20180225

REACTIONS (15)
  - Death [Fatal]
  - Nausea [Recovering/Resolving]
  - Fatigue [Recovering/Resolving]
  - Cough [Not Recovered/Not Resolved]
  - Blood pressure increased [Recovering/Resolving]
  - Decreased appetite [Unknown]
  - Condition aggravated [Not Recovered/Not Resolved]
  - Anaemia [Unknown]
  - Myocardial infarction [Unknown]
  - Feeling cold [Unknown]
  - Asthenia [Unknown]
  - Epistaxis [Unknown]
  - Constipation [Unknown]
  - Chest X-ray abnormal [Unknown]
  - Blood creatinine increased [Unknown]

NARRATIVE: CASE EVENT DATE: 2018
